FAERS Safety Report 20621585 (Version 1)
Quarter: 2022Q1

REPORT INFORMATION
  Report Type: Spontaneous
  Country: US (occurrence: US)
  Receive Date: 20220322
  Receipt Date: 20220322
  Transmission Date: 20220423
  Serious: No
  Sender: FDA-Public Use
  Company Number: US-ALLERGAN-2127077US

PATIENT
  Sex: Female
  Weight: 68.027 kg

DRUGS (2)
  1. LATISSE [Suspect]
     Active Substance: BIMATOPROST
     Indication: Growth of eyelashes
     Dosage: UNK, QPM
  2. LATISSE [Suspect]
     Active Substance: BIMATOPROST
     Dosage: UNK
     Dates: start: 2020

REACTIONS (4)
  - Therapy interrupted [Unknown]
  - Erythema of eyelid [Recovered/Resolved]
  - Eyelid rash [Recovered/Resolved]
  - Hypersensitivity [Recovered/Resolved]
